FAERS Safety Report 10263744 (Version 1)
Quarter: 2014Q2

REPORT INFORMATION
  Report Type: Spontaneous
  Country: NL (occurrence: NL)
  Receive Date: 20140627
  Receipt Date: 20140627
  Transmission Date: 20141212
  Serious: Yes (Other)
  Sender: FDA-Public Use
  Company Number: NL-AMGEN-NLDSP2014047422

PATIENT
  Age: 80 Year
  Sex: Male

DRUGS (2)
  1. NEULASTA [Suspect]
     Indication: PROPHYLAXIS
     Dosage: 10 MG/ML, INJVLST WWSP 0.6 ML, EVERY THREE WEEKS
     Route: 058
     Dates: start: 20140531, end: 20140620
  2. XGEVA [Suspect]
     Indication: PRODUCT USED FOR UNKNOWN INDICATION
     Dosage: UNK
     Route: 065
     Dates: start: 20130704, end: 20130830

REACTIONS (1)
  - Hip fracture [Unknown]
